FAERS Safety Report 16822694 (Version 4)
Quarter: 2020Q1

REPORT INFORMATION
  Report Type: Report from Study
  Country: None (occurrence: US)
  Receive Date: 20190918
  Receipt Date: 20200318
  Transmission Date: 20200409
  Serious: Yes (Hospitalization, Other)
  Sender: FDA-Public Use
  Company Number: US-INSMED, INC.-US-INS-19-02905

PATIENT
  Sex: Female

DRUGS (6)
  1. ARIKAYCE [Suspect]
     Active Substance: AMIKACIN
     Indication: MYCOBACTERIAL INFECTION
     Route: 055
     Dates: start: 20190624, end: 201909
  2. SOTALOL. [Suspect]
     Active Substance: SOTALOL
  3. ARIKAYCE [Suspect]
     Active Substance: AMIKACIN
     Route: 055
     Dates: end: 201909
  4. ARIKAYCE [Suspect]
     Active Substance: AMIKACIN
     Route: 055
  5. LAMIRA NEBULIZER SYSTEM [Suspect]
     Active Substance: DEVICE
  6. SOTALOL. [Suspect]
     Active Substance: SOTALOL
     Indication: PRODUCT USED FOR UNKNOWN INDICATION

REACTIONS (17)
  - Pneumonia [Unknown]
  - Asthenia [Unknown]
  - Headache [Unknown]
  - Epigastric discomfort [Unknown]
  - Weight decreased [Unknown]
  - Oxygen saturation decreased [Unknown]
  - Dysphagia [Unknown]
  - Walking aid user [Unknown]
  - Fall [Unknown]
  - Incorrect dose administered [Unknown]
  - Malaise [Unknown]
  - Heart rate increased [Unknown]
  - Presyncope [Unknown]
  - Dizziness [Unknown]
  - Dysphonia [Unknown]
  - Dyspnoea [Unknown]
  - Off label use [Unknown]

NARRATIVE: CASE EVENT DATE: 2019
